FAERS Safety Report 4674005-X (Version None)
Quarter: 2005Q2

REPORT INFORMATION
  Report Type: 
  Country: None (occurrence: None)
  Receive Date: 20050525
  Receipt Date: 20050511
  Transmission Date: 20051028
  Serious: Yes (Death, Hospitalization)
  Sender: FDA-Public Use
  Company Number: TNZUK200400055

PATIENT
  Age: 80 Year
  Sex: Female
  Weight: 82 kg

DRUGS (5)
  1. INNOHEP [Suspect]
     Indication: DEEP VEIN THROMBOSIS
     Dosage: 14000 IU (14000 IU, ONCE DAILY), SUBCUTANEOUS
     Route: 058
     Dates: start: 20040310, end: 20040314
  2. THYROXINE (LEVOTHYROXINE SODIUM) [Concomitant]
  3. ATORVASTATIN 9ATORVASTATIN) [Concomitant]
  4. PREDNISONE [Concomitant]
  5. AMITRIPTYLINE HCL [Concomitant]

REACTIONS (11)
  - CONSTIPATION [None]
  - EMOTIONAL DISORDER [None]
  - GENERAL PHYSICAL HEALTH DETERIORATION [None]
  - GROIN PAIN [None]
  - HEPATIC STEATOSIS [None]
  - PAIN IN EXTREMITY [None]
  - PULMONARY EMBOLISM [None]
  - PYELONEPHRITIS CHRONIC [None]
  - RETROPERITONEAL ABSCESS [None]
  - RETROPERITONEAL HAEMORRHAGE [None]
  - THROMBOSIS [None]
